FAERS Safety Report 16741264 (Version 1)
Quarter: 2019Q3

REPORT INFORMATION
  Report Type: Spontaneous
  Country: CA (occurrence: CA)
  Receive Date: 20190826
  Receipt Date: 20190826
  Transmission Date: 20191005
  Serious: Yes (Death, Other)
  Sender: FDA-Public Use
  Company Number: CA-ROCHE-2391632

PATIENT
  Age: 51 Year
  Sex: Male

DRUGS (9)
  1. VALGANCICLOVIR. [Suspect]
     Active Substance: VALGANCICLOVIR
     Indication: CYTOMEGALOVIRUS TEST POSITIVE
     Route: 065
  2. CYCLOSPORINE. [Suspect]
     Active Substance: CYCLOSPORINE
     Indication: IMMUNOSUPPRESSION
     Route: 065
  3. PREDNISONE. [Suspect]
     Active Substance: PREDNISONE
     Indication: IMMUNOSUPPRESSION
     Route: 065
  4. LETERMOVIR [Concomitant]
     Active Substance: LETERMOVIR
     Indication: CYTOMEGALOVIRUS SYNDROME
     Route: 042
  5. MYCOPHENOLIC ACID. [Suspect]
     Active Substance: MYCOPHENOLIC ACID
     Indication: IMMUNOSUPPRESSION
     Route: 065
  6. GANCICLOVIR. [Suspect]
     Active Substance: GANCICLOVIR
     Indication: CYTOMEGALOVIRUS SYNDROME
     Route: 042
     Dates: start: 20171201, end: 20180116
  7. TACROLIMUS. [Suspect]
     Active Substance: TACROLIMUS
     Indication: IMMUNOSUPPRESSION
     Route: 065
  8. FOSCARNET [Suspect]
     Active Substance: FOSCARNET
     Indication: CYTOMEGALOVIRUS SYNDROME
     Route: 042
     Dates: start: 20180117, end: 20180125
  9. METHYLPREDNISOLONE. [Suspect]
     Active Substance: METHYLPREDNISOLONE
     Indication: IMMUNOSUPPRESSION
     Dosage: FOR 3 DAYS
     Route: 042

REACTIONS (6)
  - Leukopenia [Unknown]
  - Pneumonia pseudomonal [Fatal]
  - Acute kidney injury [Unknown]
  - Hyperkalaemia [Unknown]
  - Dyspnoea [Unknown]
  - Bacterial sepsis [Fatal]
